FAERS Safety Report 25880895 (Version 1)
Quarter: 2025Q4

REPORT INFORMATION
  Report Type: Spontaneous
  Country: US (occurrence: US)
  Receive Date: 20251004
  Receipt Date: 20251004
  Transmission Date: 20260118
  Serious: Yes (Hospitalization, Other)
  Sender: ZYDUS PHARM
  Company Number: US-CADILA HEALTHCARE LIMITED-US-ZYDUS-128971

PATIENT

DRUGS (2)
  1. LAMOTRIGINE [Suspect]
     Active Substance: LAMOTRIGINE
     Indication: Epilepsy
     Dosage: 300 MILLIGRAM TWO TIMES A DAY
     Route: 065
  2. BRIVARACETAM [Concomitant]
     Active Substance: BRIVARACETAM
     Indication: Epilepsy
     Dosage: UNK
     Route: 065

REACTIONS (9)
  - Encephalopathy [Unknown]
  - Gaze palsy [Unknown]
  - Vestibular migraine [Unknown]
  - Seizure [Unknown]
  - Diplopia [Unknown]
  - Ataxia [Unknown]
  - Nausea [Unknown]
  - Nystagmus [Unknown]
  - Vomiting [Unknown]
